FAERS Safety Report 8305332-2 (Version None)
Quarter: 2012Q2

REPORT INFORMATION
  Report Type: 
  Country: None (occurrence: None)
  Receive Date: 20120423
  Receipt Date: 20120403
  Transmission Date: 20120825
  Serious: Yes (Other)
  Sender: FDA-Public Use
  Company Number: ES-ASTRAZENECA-2012SE22364

PATIENT
  Age: 48 Year
  Sex: Male
  Weight: 90 kg

DRUGS (20)
  1. TAZOBACTAM [Interacting]
     Route: 042
     Dates: start: 20110914, end: 20110919
  2. TARGOCID [Interacting]
     Route: 042
     Dates: start: 20110906, end: 20110919
  3. AMBISOME [Interacting]
     Route: 042
     Dates: start: 20110916, end: 20110926
  4. DUPHALAC [Interacting]
     Route: 048
     Dates: start: 20110831, end: 20110914
  5. HEPARIN [Interacting]
     Route: 058
     Dates: start: 20110907, end: 20110930
  6. NOXAFIL [Interacting]
     Dosage: 40 MG/ML 150 ML
     Route: 048
     Dates: start: 20110902, end: 20110917
  7. ACYCLOVIR [Interacting]
     Route: 042
     Dates: start: 20110911, end: 20110913
  8. ENOXAPARIN SODIUM [Interacting]
     Route: 058
     Dates: start: 20110825, end: 20110826
  9. VESANOID [Interacting]
     Indication: ACUTE PROMYELOCYTIC LEUKAEMIA
     Route: 048
     Dates: start: 20110826, end: 20111007
  10. CUBICIN [Interacting]
     Route: 042
     Dates: start: 20110910, end: 20110914
  11. ALLOPURINOL [Interacting]
     Route: 048
     Dates: start: 20110825, end: 20110908
  12. MAXIPIME [Interacting]
     Route: 042
     Dates: start: 20110825, end: 20110903
  13. UROKINASE VEDIM [Interacting]
     Route: 065
     Dates: start: 20110915, end: 20110915
  14. MEROPENEM [Suspect]
     Route: 042
     Dates: start: 20110905, end: 20110914
  15. OMEPRAZOLE [Interacting]
     Route: 048
     Dates: start: 20110825, end: 20111007
  16. ACETAMINOPHEN [Interacting]
     Route: 042
     Dates: start: 20110825, end: 20110908
  17. LEVOFLOXACIN [Interacting]
     Route: 048
     Dates: start: 20110918, end: 20110928
  18. ORBENIN CAP [Interacting]
     Route: 048
     Dates: start: 20110831, end: 20110916
  19. POLARAMINE [Interacting]
     Route: 048
     Dates: start: 20110916, end: 20110922
  20. FUROSEMIDE [Interacting]
     Route: 042
     Dates: start: 20110908, end: 20110926

REACTIONS (2)
  - MYOSITIS [None]
  - DRUG INTERACTION [None]
